FAERS Safety Report 18805435 (Version 2)
Quarter: 2021Q1

REPORT INFORMATION
  Report Type: Spontaneous
  Country: AU (occurrence: AU)
  Receive Date: 20210128
  Receipt Date: 20210204
  Transmission Date: 20210419
  Serious: Yes (Other)
  Sender: FDA-Public Use
  Company Number: AU-PFIZER INC-2021077739

PATIENT
  Age: 40 Year
  Sex: Male

DRUGS (1)
  1. DEPO?MEDROL [Suspect]
     Active Substance: METHYLPREDNISOLONE ACETATE
     Indication: HYPERSENSITIVITY
     Dosage: UNK

REACTIONS (5)
  - Asthenia [Unknown]
  - Off label use [Unknown]
  - Haemorrhage [Unknown]
  - Pain [Unknown]
  - Nerve injury [Unknown]
